FAERS Safety Report 8091745-3 (Version None)
Quarter: 2012Q1

REPORT INFORMATION
  Report Type: 
  Country: None (occurrence: None)
  Receive Date: 20120130
  Receipt Date: 20120130
  Transmission Date: 20120608
  Serious: Yes (Death)
  Sender: FDA-Public Use
  Company Number: None

PATIENT
  Age: 25 Year
  Sex: Male
  Weight: 101.6057 kg

DRUGS (1)
  1. RISPERIDONE [Suspect]
     Indication: SCHIZOAFFECTIVE DISORDER
     Dosage: 2MG 2XDAY BY MOUTH
     Route: 048
     Dates: start: 20111019, end: 20111110

REACTIONS (2)
  - ASPHYXIA [None]
  - INTENTIONAL SELF-INJURY [None]
